FAERS Safety Report 16134801 (Version 5)
Quarter: 2019Q3

REPORT INFORMATION
  Report Type: Spontaneous
  Country: PT (occurrence: PT)
  Receive Date: 20190329
  Receipt Date: 20190924
  Transmission Date: 20191004
  Serious: Yes (Life-Threatening, Other)
  Sender: FDA-Public Use
  Company Number: PT-MYLANLABS-2019M1027744

PATIENT
  Age: 30 Year
  Sex: Male

DRUGS (30)
  1. ALPRAZOLAM. [Suspect]
     Active Substance: ALPRAZOLAM
     Indication: CHRONIC HEPATITIS C
     Dosage: UNK (1 ML OF TRIAMCINOLONE 40 MG INJECTED)
     Route: 065
  2. LOPINAVIR/RITONAVIR [Suspect]
     Active Substance: LOPINAVIR\RITONAVIR
     Indication: CHRONIC HEPATITIS C
     Dosage: UNK
     Route: 065
  3. OXAZEPAM. [Suspect]
     Active Substance: OXAZEPAM
     Dosage: 1 ML OF TRIAMCINOLONE 40 MG INJECTED
     Route: 065
  4. TRAMADOL. [Suspect]
     Active Substance: TRAMADOL
     Indication: HEPATITIS C
  5. ZIDOVUDINE. [Suspect]
     Active Substance: ZIDOVUDINE
     Indication: CHRONIC HEPATITIS C
  6. AMPHOTERICIN B. [Suspect]
     Active Substance: AMPHOTERICIN B
     Indication: CHRONIC HEPATITIS C
  7. ZIDOVUDINE. [Suspect]
     Active Substance: ZIDOVUDINE
     Indication: HIV INFECTION CDC CATEGORY C
  8. AMPHOTERICIN B. [Suspect]
     Active Substance: AMPHOTERICIN B
     Indication: HEPATITIS C
     Dosage: 1 ML OF TRIAMCINOLONE 40 MG INJECTED
     Route: 048
  9. FLURAZEPAM [Suspect]
     Active Substance: FLURAZEPAM HYDROCHLORIDE
     Indication: HEPATITIS C
     Dosage: UNK
     Route: 065
  10. LOPINAVIR/RITONAVIR [Suspect]
     Active Substance: LOPINAVIR\RITONAVIR
     Indication: HEPATITIS C
     Dosage: UNK
     Route: 048
  11. FLURAZEPAM [Suspect]
     Active Substance: FLURAZEPAM HYDROCHLORIDE
     Indication: HIV INFECTION
  12. OXAZEPAM. [Suspect]
     Active Substance: OXAZEPAM
     Indication: PRODUCT USED FOR UNKNOWN INDICATION
     Dosage: 1 ML OF TRIAMCINOLONE 40 MG INJECTED
     Route: 048
  13. DIDANOSINE. [Suspect]
     Active Substance: DIDANOSINE
     Indication: HIV INFECTION
     Dosage: UNK, 1 ML OF TRIAMCINOLONE 40 MG INJECTED
  14. DIDANOSINE. [Suspect]
     Active Substance: DIDANOSINE
     Indication: HEPATITIS C
     Dosage: UNK
     Route: 065
  15. FLURAZEPAM [Suspect]
     Active Substance: FLURAZEPAM HYDROCHLORIDE
     Indication: CHRONIC HEPATITIS C
     Dosage: UNK, 1 ML OF TRIAMCINOLONE 40 MG INJECTED
     Route: 048
  16. BUPRENORPHINE. [Suspect]
     Active Substance: BUPRENORPHINE
     Indication: CHRONIC HEPATITIS C
     Dosage: UNK
     Route: 065
  17. AMPHOTERICIN B. [Suspect]
     Active Substance: AMPHOTERICIN B
     Indication: HIV INFECTION
     Dosage: UNK
  18. TRIAMCINOLONE                      /00031902/ [Suspect]
     Active Substance: TRIAMCINOLONE ACETONIDE
     Indication: PRODUCT USED FOR UNKNOWN INDICATION
     Dosage: 1 ML OF TRIAMCINOLONE 40 MG INJECTED
     Route: 051
  19. ALPRAZOLAM. [Suspect]
     Active Substance: ALPRAZOLAM
     Indication: HIV INFECTION
     Dosage: 1 ML OF TRIAMCINOLONE 40 MG INJECTED
     Route: 048
  20. TRAMADOL. [Suspect]
     Active Substance: TRAMADOL
     Indication: CHRONIC HEPATITIS C
     Dosage: UNK
     Route: 048
  21. ZIDOVUDINE. [Suspect]
     Active Substance: ZIDOVUDINE
     Indication: HEPATITIS C
     Dosage: UNK
     Route: 048
  22. ZIDOVUDINE. [Suspect]
     Active Substance: ZIDOVUDINE
     Indication: HIV INFECTION
     Dosage: UNK
     Route: 065
  23. DIDANOSINE. [Suspect]
     Active Substance: DIDANOSINE
     Indication: CHRONIC HEPATITIS C
     Dosage: UNK
     Route: 048
  24. LOPINAVIR/RITONAVIR [Suspect]
     Active Substance: LOPINAVIR\RITONAVIR
     Indication: HIV INFECTION
     Dosage: 1 ML OF TRIAMCINOLONE 40 MG INJECTED
     Route: 048
  25. TRAMADOL. [Suspect]
     Active Substance: TRAMADOL
     Indication: HIV INFECTION
     Dosage: UNK, 1 ML OF TRIAMCINOLONE 40 MG INJECTED
     Route: 065
  26. BUPRENORPHINE. [Suspect]
     Active Substance: BUPRENORPHINE
     Indication: HIV INFECTION
     Dosage: UNK, 1 ML OF TRIAMCINOLONE 40 MG INJECTED
     Route: 048
  27. ALPRAZOLAM. [Suspect]
     Active Substance: ALPRAZOLAM
     Indication: HEPATITIS C
  28. LOPINAVIR/RITONAVIR [Suspect]
     Active Substance: LOPINAVIR\RITONAVIR
     Indication: HIV INFECTION CDC CATEGORY C
  29. BUPRENORPHINE. [Suspect]
     Active Substance: BUPRENORPHINE
     Indication: HEPATITIS C
     Dosage: UNK
     Route: 048
  30. DIDANOSINE. [Suspect]
     Active Substance: DIDANOSINE
     Indication: HIV INFECTION CDC CATEGORY C

REACTIONS (5)
  - Hepatic fibrosis [Unknown]
  - Drug abuse [Recovered/Resolved]
  - Drug-induced liver injury [Unknown]
  - Off label use [Recovered/Resolved]
  - Product use issue [Recovered/Resolved]
